FAERS Safety Report 9137730 (Version 1)
Quarter: 2013Q1

REPORT INFORMATION
  Report Type: Spontaneous
  Country: FR (occurrence: FR)
  Receive Date: 20130304
  Receipt Date: 20130304
  Transmission Date: 20140127
  Serious: Yes (Congenital Anomaly)
  Sender: FDA-Public Use
  Company Number: FR-NICOBRDEVP-2013-03329

PATIENT
  Sex: Female

DRUGS (4)
  1. LEVETIRACETAM (UNKNOWN) [Suspect]
     Indication: EPILEPSY
     Dosage: UNK, UNKNOWN
     Route: 064
  2. TRILEPTAL [Suspect]
     Indication: EPILEPSY
     Dosage: UNK, UNKNOWN
     Route: 064
  3. PREDNISONE (UNKNOWN) [Concomitant]
     Indication: SYSTEMIC LUPUS ERYTHEMATOSUS
     Dosage: UNK, UNKNOWN
     Route: 065
  4. HYDROXYCHLOROQUINE [Concomitant]
     Indication: SYSTEMIC LUPUS ERYTHEMATOSUS
     Dosage: UNK, UNKNOWN
     Route: 065

REACTIONS (5)
  - Micrognathia [Unknown]
  - Congenital nose malformation [Unknown]
  - Phalangeal hypoplasia [Unknown]
  - Skeletal dysplasia [Unknown]
  - Foetal exposure during pregnancy [Unknown]
